FAERS Safety Report 9948832 (Version 1)
Quarter: 2014Q1

REPORT INFORMATION
  Report Type: Spontaneous
  Country: US (occurrence: US)
  Receive Date: 20140304
  Receipt Date: 20140304
  Transmission Date: 20141002
  Serious: Yes (Other)
  Sender: FDA-Public Use
  Company Number: US-AMGEN-USASP2014013572

PATIENT
  Age: 78 Year
  Sex: Female

DRUGS (6)
  1. PROLIA [Suspect]
     Indication: OSTEOPOROSIS
     Dosage: UNK
     Route: 065
     Dates: start: 201310
  2. VITAMIN D                          /00107901/ [Concomitant]
  3. CALCIUM [Concomitant]
  4. ANSAID [Concomitant]
     Indication: ARTHRITIS
  5. CELEBREX [Concomitant]
     Indication: ARTHRITIS
  6. DIAZEPAM [Concomitant]
     Dosage: ONE OR 2 PER DAY, QD

REACTIONS (17)
  - Rotator cuff syndrome [Unknown]
  - Dizziness [Unknown]
  - Dry skin [Unknown]
  - Ear pain [Unknown]
  - Pain in jaw [Unknown]
  - Rash macular [Unknown]
  - Neck pain [Unknown]
  - Mobility decreased [Unknown]
  - Fall [Unknown]
  - Skin disorder [Unknown]
  - Pain [Unknown]
  - Gait disturbance [Unknown]
  - Myalgia [Unknown]
  - Bone pain [Unknown]
  - Arthralgia [Unknown]
  - Cystitis [Unknown]
  - Pain in extremity [Unknown]
